FAERS Safety Report 5152896-6 (Version None)
Quarter: 2006Q4

REPORT INFORMATION
  Report Type: 
  Country: None (occurrence: None)
  Receive Date: 20061117
  Receipt Date: 20061108
  Transmission Date: 20070319
  Serious: Yes (Other)
  Sender: FDA-Public Use
  Company Number: US-JNJFOC-20061102466

PATIENT
  Sex: Female
  Weight: 65.77 kg

DRUGS (2)
  1. DURAGESIC-100 [Suspect]
     Indication: PAIN
     Route: 062
  2. HYDROCODONE [Concomitant]
     Indication: PAIN
     Dosage: 10/10, ONE EVERY 4-6 HOURS AS NEEDED
     Route: 065

REACTIONS (2)
  - CONVULSION [None]
  - HEART RATE INCREASED [None]
